FAERS Safety Report 4428723-9 (Version None)
Quarter: 2004Q3

REPORT INFORMATION
  Report Type: 
  Country: None (occurrence: None)
  Receive Date: 20040818
  Receipt Date: 20040212
  Transmission Date: 20050211
  Serious: No
  Sender: FDA-Public Use
  Company Number: US-BRISTOL-MYERS SQUIBB COMPANY-12503751

PATIENT
  Age: 47 Year
  Sex: Female
  Weight: 112 kg

DRUGS (3)
  1. TEQUIN [Suspect]
     Indication: SINUSITIS
     Route: 048
     Dates: start: 20040211, end: 20040212
  2. SYNTHROID [Concomitant]
     Dosage: FOR YEARS
  3. AVALIDE [Concomitant]
     Dosage: DOSAGE FORM:  TABLET (150MG/12.5MG), FOR 2-3 YEARS
     Route: 048

REACTIONS (5)
  - NAUSEA [None]
  - PRURITUS [None]
  - RASH GENERALISED [None]
  - VISION BLURRED [None]
  - VOMITING [None]
